FAERS Safety Report 5259990-X (Version None)
Quarter: 2007Q1

REPORT INFORMATION
  Report Type: 
  Country: None (occurrence: None)
  Receive Date: 20070309
  Receipt Date: 20060124
  Transmission Date: 20070707
  Serious: No
  Sender: FDA-Public Use
  Company Number: US-GLAXOSMITHKLINE-A0590399A

PATIENT
  Age: 46 Year
  Sex: Female

DRUGS (1)
  1. AMERICAN FARE NICOTINE GUM 2MG, ORIGINAL [Suspect]
     Dates: start: 20060103, end: 20060120

REACTIONS (1)
  - CHEST PAIN [None]
